FAERS Safety Report 5822670-3 (Version None)
Quarter: 2008Q3

REPORT INFORMATION
  Report Type: 
  Country: None (occurrence: None)
  Receive Date: 20080725
  Receipt Date: 20080718
  Transmission Date: 20090109
  Serious: Yes (Hospitalization, Other)
  Sender: FDA-Public Use
  Company Number: JP-BRISTOL-MYERS SQUIBB COMPANY-14276018

PATIENT
  Age: 36 Year
  Sex: Female

DRUGS (1)
  1. MITOMYCIN-C [Suspect]
     Indication: CERVIX CARCINOMA
     Dosage: ALSO TAKEN AS 15MG X3 FROM MAR08 TO APR08.
     Route: 042
     Dates: start: 20080713

REACTIONS (5)
  - ARTHRALGIA [None]
  - BONE MARROW FAILURE [None]
  - FUNGAL INFECTION [None]
  - LYMPHANGIOSIS CARCINOMATOSA [None]
  - PNEUMONIA [None]
